FAERS Safety Report 11368247 (Version 1)
Quarter: 2015Q3

REPORT INFORMATION
  Report Type: Spontaneous
  Country: PT (occurrence: None)
  Receive Date: 20150810
  Receipt Date: 20150810
  Transmission Date: 20151125
  Serious: Yes (Other)
  Sender: FDA-Public Use
  Company Number: INS201412-000314

PATIENT
  Age: 62 Year
  Sex: Female

DRUGS (3)
  1. DULOXETINE (DULOXETINE) [Suspect]
     Active Substance: DULOXETINE
  2. FENTANYL (FENTANYL) [Suspect]
     Active Substance: FENTANYL
  3. SERTRALINE [Suspect]
     Active Substance: SERTRALINE HYDROCHLORIDE

REACTIONS (1)
  - Serotonin syndrome [None]
